FAERS Safety Report 18259312 (Version 5)
Quarter: 2021Q4

REPORT INFORMATION
  Report Type: Spontaneous
  Country: US (occurrence: US)
  Receive Date: 20200911
  Receipt Date: 20211005
  Transmission Date: 20220303
  Serious: Yes (Other)
  Sender: FDA-Public Use
  Company Number: US-PFIZER INC-2020351863

PATIENT
  Age: 38 Year
  Sex: Female

DRUGS (2)
  1. XELJANZ XR [Suspect]
     Active Substance: TOFACITINIB CITRATE
     Indication: Rheumatoid arthritis
     Dosage: 11 MG, DAILY
     Route: 048
     Dates: start: 20200717
  2. XELJANZ XR [Suspect]
     Active Substance: TOFACITINIB CITRATE
     Dosage: 11 MG, 1X/DAY (ONCE DAILY)
     Route: 048
     Dates: start: 20200909, end: 20210730

REACTIONS (9)
  - Cellulitis [Recovering/Resolving]
  - Rheumatoid arthritis [Unknown]
  - Ear infection [Recovering/Resolving]
  - Fluid retention [Unknown]
  - Arthralgia [Recovered/Resolved]
  - Anxiety [Unknown]
  - Depression [Unknown]
  - Delusion [Unknown]
  - Drug ineffective [Unknown]
